FAERS Safety Report 5840325-6 (Version None)
Quarter: 2008Q3

REPORT INFORMATION
  Report Type: 
  Country: None (occurrence: None)
  Receive Date: 20080811
  Receipt Date: 20080808
  Transmission Date: 20090109
  Serious: Yes (Life-Threatening, Other)
  Sender: FDA-Public Use
  Company Number: FR-JNJFOC-20080501041

PATIENT
  Sex: Female
  Weight: 75 kg

DRUGS (8)
  1. RISPERDAL [Suspect]
     Route: 048
  2. RISPERDAL [Suspect]
     Indication: DELUSION
     Route: 048
  3. LEVOTHYROX [Concomitant]
     Route: 048
  4. XANAX [Concomitant]
     Indication: ANXIETY
     Route: 048
  5. EUTHYRAL [Concomitant]
     Route: 048
  6. XYZAL [Concomitant]
     Indication: HYPERSENSITIVITY
     Route: 048
  7. PIASCLEDINE [Concomitant]
     Route: 048
  8. PROGESTERONE [Concomitant]
     Route: 048

REACTIONS (4)
  - ELECTROCARDIOGRAM QT PROLONGED [None]
  - PHLEBITIS [None]
  - VENTRICULAR EXTRASYSTOLES [None]
  - VERTIGO [None]
